FAERS Safety Report 8179766-3 (Version None)
Quarter: 2012Q1

REPORT INFORMATION
  Report Type: 
  Country: None (occurrence: None)
  Receive Date: 20120302
  Receipt Date: 20120223
  Transmission Date: 20120608
  Serious: Yes (Other)
  Sender: FDA-Public Use
  Company Number: JP-GE HEALTHCARE MEDICAL DIAGNOSTICS-MSTR-NO-1108S-0223

PATIENT
  Sex: Male
  Weight: 51.6 kg

DRUGS (4)
  1. METASTRON [Suspect]
     Route: 042
     Dates: start: 20090729, end: 20090729
  2. METASTRON [Suspect]
     Route: 042
     Dates: start: 20100126, end: 20100126
  3. METASTRON [Suspect]
     Indication: METASTATIC PAIN
     Route: 042
     Dates: start: 20090219, end: 20090219
  4. OXYCODONE HCL [Concomitant]

REACTIONS (1)
  - ANAEMIA [None]
